FAERS Safety Report 9376990 (Version 2)
Quarter: 2013Q3

REPORT INFORMATION
  Report Type: Spontaneous
  Country: AU (occurrence: AU)
  Receive Date: 20130701
  Receipt Date: 20130819
  Transmission Date: 20140515
  Serious: Yes (Hospitalization, Other)
  Sender: FDA-Public Use
  Company Number: PHHY2013AU067034

PATIENT
  Sex: Female

DRUGS (3)
  1. ACLASTA [Suspect]
     Dosage: UNK
     Route: 042
  2. ACLASTA [Suspect]
     Dosage: UNK
     Route: 042
     Dates: start: 201206
  3. ACLASTA [Suspect]
     Dosage: UNK
     Route: 042

REACTIONS (5)
  - Jaw fracture [Unknown]
  - Dementia [Unknown]
  - Weight decreased [Unknown]
  - Eating disorder [Unknown]
  - Fall [Unknown]
